FAERS Safety Report 16069441 (Version 2)
Quarter: 2019Q2

REPORT INFORMATION
  Report Type: Spontaneous
  Country: US (occurrence: US)
  Receive Date: 20190313
  Receipt Date: 20190617
  Transmission Date: 20190711
  Serious: Yes (Other)
  Sender: FDA-Public Use
  Company Number: US-SA-2019SA065735

PATIENT
  Age: 57 Year
  Sex: Female
  Weight: 95.25 kg

DRUGS (10)
  1. TEMAZEPAM. [Concomitant]
     Active Substance: TEMAZEPAM
  2. NEOSAR [Concomitant]
     Active Substance: CYCLOPHOSPHAMIDE
  3. LORAZEPAM. [Concomitant]
     Active Substance: LORAZEPAM
  4. METHADONE [Concomitant]
     Active Substance: METHADONE HYDROCHLORIDE
  5. LANSOPRAZOLE. [Concomitant]
     Active Substance: LANSOPRAZOLE
  6. TAXOTERE [Suspect]
     Active Substance: DOCETAXEL
     Dosage: UNK UNK, UNK, PLAINTIFF WILL SUPPLEMENT
     Route: 042
     Dates: start: 20091130, end: 20091130
  7. METFORMIN [Concomitant]
     Active Substance: METFORMIN HYDROCHLORIDE
     Dosage: UNK
     Dates: start: 20110405
  8. ZOFRAN [Concomitant]
     Active Substance: ONDANSETRON HYDROCHLORIDE
  9. TAXOTERE [Suspect]
     Active Substance: DOCETAXEL
     Indication: BREAST CANCER FEMALE
     Dosage: , PLAINTIFF WILL SUPPLEMENTUNK UNK, UNK
     Route: 042
     Dates: start: 20090901, end: 20090901
  10. ADRIAMYCIN [Concomitant]
     Active Substance: DOXORUBICIN HYDROCHLORIDE

REACTIONS (1)
  - Alopecia [Recovering/Resolving]
